FAERS Safety Report 15651773 (Version 1)
Quarter: 2018Q4

REPORT INFORMATION
  Report Type: Spontaneous
  Country: IE (occurrence: IE)
  Receive Date: 20181123
  Receipt Date: 20181123
  Transmission Date: 20190205
  Serious: Yes (Other)
  Sender: FDA-Public Use
  Company Number: IE-CLINIGEN GROUP PLC/ CLINIGEN HEALTHCARE LTD-IE-CLGN-18-00482

PATIENT
  Age: 32 Year
  Sex: Female

DRUGS (8)
  1. GANCICLOVIR. [Concomitant]
     Active Substance: GANCICLOVIR
     Indication: CYTOMEGALOVIRUS INFECTION
     Route: 042
  2. FOSCARNET SODIUM. [Suspect]
     Active Substance: FOSCARNET SODIUM
     Indication: CYTOMEGALOVIRUS INFECTION
  3. TACROLIMUS. [Concomitant]
     Active Substance: TACROLIMUS
     Indication: IMMUNOSUPPRESSANT DRUG THERAPY
  4. PREDNISOLONE. [Concomitant]
     Active Substance: PREDNISOLONE
     Indication: IMMUNOSUPPRESSANT DRUG THERAPY
  5. SEPTRIN [Concomitant]
     Active Substance: SULFAMETHOXAZOLE\TRIMETHOPRIM
     Indication: INFECTION PROPHYLAXIS
  6. VALGANCICLOVIR. [Concomitant]
     Active Substance: VALGANCICLOVIR
     Indication: INFECTION PROPHYLAXIS
  7. MYCOPHENOLATE MOFETIL. [Concomitant]
     Active Substance: MYCOPHENOLATE MOFETIL
     Indication: IMMUNOSUPPRESSANT DRUG THERAPY
  8. CIDOFOVIR. [Concomitant]
     Active Substance: CIDOFOVIR
     Indication: CYTOMEGALOVIRUS INFECTION

REACTIONS (4)
  - Bile duct obstruction [Unknown]
  - Toxicity to various agents [Unknown]
  - Off label use [Unknown]
  - Biliary tract disorder [Unknown]
